FAERS Safety Report 18577009 (Version 1)
Quarter: 2020Q4

REPORT INFORMATION
  Report Type: Spontaneous
  Country: FR (occurrence: FR)
  Receive Date: 20201203
  Receipt Date: 20201203
  Transmission Date: 20210114
  Serious: Yes (Hospitalization)
  Sender: FDA-Public Use
  Company Number: FR-ELI_LILLY_AND_COMPANY-FR202011010758

PATIENT
  Age: 43 Year
  Sex: Male

DRUGS (6)
  1. ZYPADHERA [Suspect]
     Active Substance: OLANZAPINE PAMOATE
     Indication: PSYCHOTIC DISORDER
     Dosage: 1 DOSAGE FORM, 2/W
     Route: 042
     Dates: start: 20200721, end: 20200805
  2. ZYPADHERA [Suspect]
     Active Substance: OLANZAPINE PAMOATE
     Dosage: 1 DOSAGE FORM, 2/W
     Route: 042
  3. ZYPADHERA [Suspect]
     Active Substance: OLANZAPINE PAMOATE
     Indication: PSYCHOTIC DISORDER
     Dosage: 1 DOSAGE FORM, 2/W
     Route: 042
     Dates: start: 20200721, end: 20200805
  4. ZYPADHERA [Suspect]
     Active Substance: OLANZAPINE PAMOATE
     Dosage: 1 DOSAGE FORM, 2/W
     Route: 042
  5. ZYPADHERA [Suspect]
     Active Substance: OLANZAPINE PAMOATE
     Indication: PSYCHOTIC DISORDER
     Dosage: 1 DOSAGE FORM, 2/W
     Route: 042
     Dates: start: 20200721, end: 20200805
  6. ZYPADHERA [Suspect]
     Active Substance: OLANZAPINE PAMOATE
     Dosage: 1 DOSAGE FORM, 2/W
     Route: 042

REACTIONS (2)
  - Condition aggravated [Recovered/Resolved]
  - Incorrect route of product administration [Unknown]

NARRATIVE: CASE EVENT DATE: 20200724
